FAERS Safety Report 8599345-3 (Version None)
Quarter: 2012Q3

REPORT INFORMATION
  Report Type: 
  Country: None (occurrence: None)
  Receive Date: 20120816
  Receipt Date: 20120726
  Transmission Date: 20120928
  Serious: Yes (Other)
  Sender: FDA-Public Use
  Company Number: BR-GENZYME-CERZ-1002600

PATIENT
  Sex: Female

DRUGS (1)
  1. CEREZYME [Suspect]
     Indication: GAUCHER'S DISEASE
     Dosage: UNK
     Route: 042

REACTIONS (6)
  - BLINDNESS [None]
  - HERPES ZOSTER [None]
  - POST PROCEDURAL HAEMORRHAGE [None]
  - CATARACT [None]
  - EYE OPERATION [None]
  - THROMBOCYTOPENIA [None]
